FAERS Safety Report 16540812 (Version 2)
Quarter: 2019Q3

REPORT INFORMATION
  Report Type: Spontaneous
  Country: US (occurrence: US)
  Receive Date: 20190708
  Receipt Date: 20190809
  Transmission Date: 20191004
  Serious: No
  Sender: FDA-Public Use
  Company Number: US-SA-2019SA178430

PATIENT
  Age: 29 Year
  Sex: Female

DRUGS (1)
  1. DUPIXENT [Suspect]
     Active Substance: DUPILUMAB
     Dosage: UNK
     Route: 058
     Dates: start: 201906

REACTIONS (9)
  - Eyelids pruritus [Unknown]
  - Nausea [Recovering/Resolving]
  - Erythema of eyelid [Unknown]
  - Injection site bruising [Unknown]
  - Dry skin [Unknown]
  - Dizziness [Recovering/Resolving]
  - Eyelid skin dryness [Unknown]
  - Injection site erythema [Unknown]
  - Injection site swelling [Unknown]

NARRATIVE: CASE EVENT DATE: 201906
